FAERS Safety Report 11838951 (Version 2)
Quarter: 2016Q1

REPORT INFORMATION
  Report Type: Report from Study
  Country: CA (occurrence: CA)
  Receive Date: 20151216
  Receipt Date: 20160226
  Transmission Date: 20160525
  Serious: Yes (Other)
  Sender: FDA-Public Use
  Company Number: CA-ROCHE-ITM201505IM016670

PATIENT
  Sex: Male
  Weight: 79.4 kg

DRUGS (10)
  1. ESBRIET [Suspect]
     Active Substance: PIRFENIDONE
     Route: 048
     Dates: start: 20150908
  2. COVERSYL [Concomitant]
     Active Substance: PERINDOPRIL
  3. BISOPROLOL [Concomitant]
     Active Substance: BISOPROLOL
  4. CRESTOR [Concomitant]
     Active Substance: ROSUVASTATIN CALCIUM
  5. ESBRIET [Suspect]
     Active Substance: PIRFENIDONE
     Indication: IDIOPATHIC PULMONARY FIBROSIS
     Route: 048
     Dates: start: 20140825
  6. ASA [Concomitant]
     Active Substance: ASPIRIN
  7. LYRICA [Concomitant]
     Active Substance: PREGABALIN
  8. ESBRIET [Suspect]
     Active Substance: PIRFENIDONE
     Route: 048
     Dates: start: 2016
  9. AMITRIPTYLINE [Concomitant]
     Active Substance: AMITRIPTYLINE
  10. ESBRIET [Suspect]
     Active Substance: PIRFENIDONE
     Route: 048
     Dates: start: 20150901

REACTIONS (2)
  - Malaise [Unknown]
  - Oesophageal carcinoma [Not Recovered/Not Resolved]
